FAERS Safety Report 9161287 (Version 1)
Quarter: 2013Q1

REPORT INFORMATION
  Report Type: Spontaneous
  Country: US (occurrence: US)
  Receive Date: 20130313
  Receipt Date: 20130313
  Transmission Date: 20140127
  Serious: No
  Sender: FDA-Public Use
  Company Number: US-009507513-1303USA005849

PATIENT
  Sex: Male

DRUGS (2)
  1. CLARITIN-D 12 HOUR [Suspect]
     Indication: NASOPHARYNGITIS
     Dosage: 5 MG, ONCE
     Route: 048
     Dates: start: 20130224
  2. CLARITIN-D 12 HOUR [Suspect]
     Indication: MEDICAL OBSERVATION

REACTIONS (2)
  - Dizziness [Unknown]
  - Expired drug administered [Unknown]
